FAERS Safety Report 7512456-6 (Version None)
Quarter: 2011Q2

REPORT INFORMATION
  Report Type: 
  Country: None (occurrence: None)
  Receive Date: 20110531
  Receipt Date: 20110526
  Transmission Date: 20111010
  Serious: Yes (Other)
  Sender: FDA-Public Use
  Company Number: JP-PFIZER INC-2011114379

PATIENT
  Sex: Male

DRUGS (2)
  1. ZYVOX [Suspect]
     Route: 041
  2. ITRACONAZOLE [Concomitant]
     Route: 065

REACTIONS (2)
  - DELIRIUM [None]
  - CONVULSION [None]
